FAERS Safety Report 6305644-8 (Version None)
Quarter: 2009Q3

REPORT INFORMATION
  Report Type: 
  Country: None (occurrence: None)
  Receive Date: 20090806
  Receipt Date: 20090722
  Transmission Date: 20100115
  Serious: Yes (Hospitalization)
  Sender: FDA-Public Use
  Company Number: 8049589

PATIENT
  Age: 40 Year
  Sex: Female

DRUGS (2)
  1. KEPPRA [Suspect]
  2. VIMPAT [Suspect]
     Dosage: 2 DF /D PO
     Route: 048

REACTIONS (1)
  - GRAND MAL CONVULSION [None]
